FAERS Safety Report 5090075-1 (Version None)
Quarter: 2006Q3

REPORT INFORMATION
  Report Type: 
  Country: None (occurrence: None)
  Receive Date: 20060828
  Receipt Date: 20060811
  Transmission Date: 20061208
  Serious: Yes (Hospitalization)
  Sender: FDA-Public Use
  Company Number: 2006AP03810

PATIENT
  Sex: Female

DRUGS (2)
  1. ARIMIDEX [Suspect]
     Indication: BREAST CANCER
     Route: 048
     Dates: start: 20040910, end: 20060811
  2. FAMORUBICIN [Suspect]
     Dosage: FOUR COURSES GIVEN 90 - 110MG
     Route: 042

REACTIONS (1)
  - CARDIAC FAILURE [None]
